FAERS Safety Report 14168140 (Version 5)
Quarter: 2018Q1

REPORT INFORMATION
  Report Type: Report from Study
  Country: None (occurrence: AU)
  Receive Date: 20171108
  Receipt Date: 20180105
  Transmission Date: 20180508
  Serious: Yes (Hospitalization, Other)
  Sender: FDA-Public Use
  Company Number: AU-ABBVIE-17K-008-2150723-00

PATIENT
  Sex: Female

DRUGS (2)
  1. WARFARIN [Concomitant]
     Active Substance: WARFARIN
     Indication: PRODUCT USED FOR UNKNOWN INDICATION
     Dates: start: 2006
  2. HUMIRA [Suspect]
     Active Substance: ADALIMUMAB
     Indication: CROHN^S DISEASE
     Route: 058
     Dates: start: 20170809, end: 2017

REACTIONS (8)
  - Procedural haemorrhage [Unknown]
  - Arrhythmia [Not Recovered/Not Resolved]
  - Heart rate increased [Unknown]
  - Thrombosis [Recovering/Resolving]
  - Anaemia [Unknown]
  - Cardiac function disturbance postoperative [Not Recovered/Not Resolved]
  - Intestinal resection [Recovering/Resolving]
  - Cardiac disorder [Unknown]

NARRATIVE: CASE EVENT DATE: 2017
